FAERS Safety Report 15810152 (Version 1)
Quarter: 2019Q1

REPORT INFORMATION
  Report Type: Spontaneous
  Country: US (occurrence: US)
  Receive Date: 20190111
  Receipt Date: 20190111
  Transmission Date: 20190417
  Serious: No
  Sender: FDA-Public Use
  Company Number: US-ROCHE-2160726

PATIENT
  Sex: Male
  Weight: 67.36 kg

DRUGS (2)
  1. RITUXAN [Suspect]
     Active Substance: RITUXIMAB
     Indication: LYMPHOMA
     Dosage: 10MG/ML; INEJCTION
     Route: 042
     Dates: start: 20180709
  2. TREANDA [Concomitant]
     Active Substance: BENDAMUSTINE HYDROCHLORIDE
     Indication: LYMPHOMA
     Route: 042
     Dates: start: 20180709

REACTIONS (4)
  - Hepatic pain [Unknown]
  - Abdominal discomfort [Unknown]
  - Night sweats [Unknown]
  - Decreased appetite [Unknown]
